FAERS Safety Report 5669112-9 (Version None)
Quarter: 2008Q1

REPORT INFORMATION
  Report Type: 
  Country: None (occurrence: None)
  Receive Date: 20080317
  Receipt Date: 20080303
  Transmission Date: 20080703
  Serious: Yes (Life-Threatening, Hospitalization)
  Sender: FDA-Public Use
  Company Number: NL-AMGEN-US262146

PATIENT
  Sex: Male

DRUGS (2)
  1. ENBREL [Suspect]
     Indication: ANKYLOSING SPONDYLITIS
     Dosage: LYOPHILIZED: 25 MG TWICE A WEEK
     Route: 065
  2. ENBREL [Suspect]
     Dosage: PFS: 25 MG TWICE A WEEK

REACTIONS (3)
  - INFECTION [None]
  - INFLAMMATION [None]
  - INJECTION SITE PAIN [None]
